FAERS Safety Report 5399240-7 (Version None)
Quarter: 2007Q3

REPORT INFORMATION
  Report Type: 
  Country: None (occurrence: None)
  Receive Date: 20070727
  Receipt Date: 20070720
  Transmission Date: 20080115
  Serious: Yes (Other)
  Sender: FDA-Public Use
  Company Number: A0662233A

PATIENT
  Age: 74 Year
  Sex: Male
  Weight: 90.9 kg

DRUGS (3)
  1. BUPROPION HCL [Suspect]
     Indication: DEPRESSION
     Dosage: 150MG TWICE PER DAY
     Route: 048
     Dates: start: 20060917, end: 20061017
  2. LEXAPRO [Concomitant]
     Indication: DEPRESSION
     Dosage: 20MG PER DAY
     Route: 048
     Dates: start: 19900301
  3. AMITRIPTYLINE HCL [Concomitant]
     Dosage: 10MG PER DAY
     Dates: start: 20050915

REACTIONS (5)
  - EXTRASYSTOLES [None]
  - HEART RATE DECREASED [None]
  - HEART RATE IRREGULAR [None]
  - SUPRAVENTRICULAR EXTRASYSTOLES [None]
  - VENTRICULAR EXTRASYSTOLES [None]
